FAERS Safety Report 4764930-3 (Version None)
Quarter: 2005Q3

REPORT INFORMATION
  Report Type: 
  Country: None (occurrence: None)
  Receive Date: 20050907
  Receipt Date: 20050826
  Transmission Date: 20060218
  Serious: Yes (Hospitalization)
  Sender: FDA-Public Use
  Company Number: 217234

PATIENT
  Age: 63 Year
  Sex: Female
  Weight: 72.3 kg

DRUGS (1)
  1. BEVACIZUMAB (BEVACIZUMAB) PWDR + SOLVENT, INFUSION SOLN, 100MG [Suspect]
     Indication: OVARIAN CANCER
     Dosage: 1118 MG, Q3W, INTRAVENOUS
     Route: 042
     Dates: start: 20050511

REACTIONS (1)
  - PULMONARY HYPERTENSION [None]
